FAERS Safety Report 8432285 (Version 3)
Quarter: 2013Q1

REPORT INFORMATION
  Report Type: Spontaneous
  Country: JP (occurrence: JP)
  Receive Date: 20120229
  Receipt Date: 20130226
  Transmission Date: 20140127
  Serious: Yes (Hospitalization, Other)
  Sender: FDA-Public Use
  Company Number: JP-GE HEALTHCARE MEDICAL DIAGNOSTICS-OMPQ-NO-1202S-0231

PATIENT
  Age: 62 Year
  Sex: Female

DRUGS (11)
  1. OMNIPAQUE [Suspect]
     Indication: CORONARY ARTERY DISEASE
     Route: 065
     Dates: start: 20111226, end: 20111226
  2. CLOPIDOGREL [Suspect]
     Route: 048
     Dates: start: 20111214
  3. NICORANDIL (NICORANDIS) [Concomitant]
     Dates: start: 20111206
  4. ACETYLSALICYLIC ACID (BAYASPIRIN) [Concomitant]
     Dates: start: 20111206
  5. ATORVASTATIN CALCIUM (LIPITOR) [Concomitant]
     Dates: start: 20111205
  6. LANSOPRAZOLE (TAKEPRON) [Concomitant]
     Dates: start: 20111205
  7. ENALAPRIL MALEATE (RENIVACE) [Concomitant]
     Dates: start: 20111206
  8. SITAGLIPTIN PHOSPHATE (JANUVIA) [Concomitant]
     Dates: start: 20111209
  9. BISOPROLOL FUMARARE (MAINTATE) [Concomitant]
     Dates: start: 20111226
  10. INSULIN GLARGINE (LANTUS) [Concomitant]
  11. INSULIN GLULISINE (APIDRA) [Concomitant]
     Dates: start: 20111215

REACTIONS (8)
  - Cardiac failure [Recovered/Resolved]
  - Myocardial infarction [Unknown]
  - Nephropathy toxic [Recovering/Resolving]
  - Pyrexia [None]
  - Dizziness [None]
  - Dizziness [None]
  - Pleural effusion [None]
  - Dehydration [None]
